FAERS Safety Report 8540743-1 (Version None)
Quarter: 2012Q3

REPORT INFORMATION
  Report Type: 
  Country: None (occurrence: None)
  Receive Date: 20120726
  Receipt Date: 20120712
  Transmission Date: 20120928
  Serious: No
  Sender: FDA-Public Use
  Company Number: US-ASTRAZENECA-2012SE48776

PATIENT
  Age: 54 Year
  Sex: Male

DRUGS (2)
  1. SYMBICORT [Suspect]
     Indication: ASTHMA
     Dosage: 160/ 4.5 MCG, TWO INHAILATIONS, TWO TIMES A DAY
     Route: 055
  2. PROAIR HFA [Concomitant]
     Indication: ASTHMA

REACTIONS (1)
  - PAINFUL RESPIRATION [None]
